FAERS Safety Report 16193462 (Version 1)
Quarter: 2019Q2

REPORT INFORMATION
  Report Type: Spontaneous
  Country: US (occurrence: US)
  Receive Date: 20190413
  Receipt Date: 20190413
  Transmission Date: 20190711
  Serious: No
  Sender: FDA-Public Use
  Company Number: US-TEVA-2019-US-1028883

PATIENT
  Age: 67 Year
  Sex: Male

DRUGS (1)
  1. METOPROLOL SUCCINATE ER TABLET [Suspect]
     Active Substance: METOPROLOL SUCCINATE
     Indication: HYPERTENSION
     Route: 065
     Dates: start: 20190304

REACTIONS (4)
  - Skin fissures [Unknown]
  - Rash [Unknown]
  - Blister [Unknown]
  - Sneezing [Unknown]

NARRATIVE: CASE EVENT DATE: 20190304
